FAERS Safety Report 8144829-5 (Version None)
Quarter: 2012Q1

REPORT INFORMATION
  Report Type: 
  Country: None (occurrence: None)
  Receive Date: 20120217
  Receipt Date: 20120210
  Transmission Date: 20120608
  Serious: Yes (Other)
  Sender: FDA-Public Use
  Company Number: US-PURDUE-USA-2012-0081320

PATIENT
  Age: 50 Year
  Sex: Male
  Weight: 81 kg

DRUGS (10)
  1. OXYCONTIN [Suspect]
     Indication: BACK PAIN
     Dosage: 30 MG, SEE TEXT
     Route: 048
  2. OXYCODONE HCL [Suspect]
     Indication: PRODUCT USED FOR UNKNOWN INDICATION
  3. ROXICODONE [Suspect]
     Indication: PRODUCT USED FOR UNKNOWN INDICATION
  4. ACETAMINOPHEN [Concomitant]
     Indication: PRODUCT USED FOR UNKNOWN INDICATION
  5. OXYCONTIN [Suspect]
     Indication: DRUG WITHDRAWAL SYNDROME
  6. OXYCONTIN [Suspect]
     Indication: NECK PAIN
     Dosage: 80 MG, SEE TEXT
     Route: 048
  7. OPANA [Suspect]
     Indication: PRODUCT USED FOR UNKNOWN INDICATION
  8. SUBOXONE [Suspect]
     Indication: PRODUCT USED FOR UNKNOWN INDICATION
  9. THORAZINE [Concomitant]
     Indication: PRODUCT USED FOR UNKNOWN INDICATION
  10. OXYCONTIN [Suspect]
     Indication: BREAKTHROUGH PAIN
     Dosage: 20 MG, SEE TEXT
     Dates: start: 20120118, end: 20120119

REACTIONS (20)
  - MALAISE [None]
  - FEELING ABNORMAL [None]
  - VOMITING [None]
  - CONVULSION [None]
  - REGURGITATION [None]
  - FEELING HOT [None]
  - WEIGHT DECREASED [None]
  - TINNITUS [None]
  - THERAPY REGIMEN CHANGED [None]
  - INSOMNIA [None]
  - EYE DISORDER [None]
  - COLD SWEAT [None]
  - DRUG WITHDRAWAL SYNDROME [None]
  - BRUXISM [None]
  - TREMOR [None]
  - DEHYDRATION [None]
  - MOOD ALTERED [None]
  - NIGHTMARE [None]
  - MUSCLE TWITCHING [None]
  - PAIN [None]
